FAERS Safety Report 19983141 (Version 1)
Quarter: 2021Q4

REPORT INFORMATION
  Report Type: Spontaneous
  Country: JP (occurrence: JP)
  Receive Date: 20211022
  Receipt Date: 20211022
  Transmission Date: 20220303
  Serious: Yes (Hospitalization)
  Sender: FDA-Public Use
  Company Number: JP-GEHPL-2021JSU005234AA

PATIENT

DRUGS (3)
  1. OMNIPAQUE [Suspect]
     Active Substance: IOHEXOL
     Indication: Scan with contrast
     Dosage: 150 ML, SINGLE
     Route: 042
     Dates: start: 20211018, end: 20211018
  2. OMNIPAQUE [Suspect]
     Active Substance: IOHEXOL
     Indication: Epigastric discomfort
  3. MEDROL [Concomitant]
     Active Substance: METHYLPREDNISOLONE
     Indication: Allergy prophylaxis
     Dosage: UNK
     Dates: start: 20211018, end: 20211018

REACTIONS (4)
  - Dysphonia [Recovering/Resolving]
  - Pruritus [Recovering/Resolving]
  - Rash [Recovering/Resolving]
  - Urticaria [Recovering/Resolving]

NARRATIVE: CASE EVENT DATE: 20211018
